FAERS Safety Report 9247034 (Version 2)
Quarter: 2013Q2

REPORT INFORMATION
  Report Type: Spontaneous
  Country: GB (occurrence: GB)
  Receive Date: 20130423
  Receipt Date: 20130529
  Transmission Date: 20140414
  Serious: Yes (Other)
  Sender: FDA-Public Use
  Company Number: GB-SP-2013-05093

PATIENT
  Age: 68 Year
  Sex: Male

DRUGS (1)
  1. BCG THERAPEUTICS [Suspect]
     Indication: BLADDER CANCER
     Dosage: NOT REPORTED
     Route: 043

REACTIONS (6)
  - HIV infection [Recovered/Resolved]
  - Non-Hodgkin^s lymphoma [Recovered/Resolved]
  - Bovine tuberculosis [Recovered/Resolved]
  - Abdominal pain [Recovered/Resolved]
  - Pyrexia [Recovered/Resolved]
  - Inguinal mass [Recovered/Resolved]
